FAERS Safety Report 10010779 (Version 2)
Quarter: 2014Q2

REPORT INFORMATION
  Report Type: Spontaneous
  Country: JP (occurrence: JP)
  Receive Date: 20140314
  Receipt Date: 20140507
  Transmission Date: 20141212
  Serious: Yes (Other)
  Sender: FDA-Public Use
  Company Number: JP-AMGEN-JPNSP2014018203

PATIENT
  Age: 78 Year
  Sex: Female
  Weight: 51 kg

DRUGS (3)
  1. PRALIA [Suspect]
     Indication: OSTEOPOROSIS
     Dosage: 60 MG, Q6MO
     Route: 058
     Dates: start: 20140107
  2. EDIROL [Suspect]
     Indication: ILL-DEFINED DISORDER
     Dosage: 0.75 MUG, QD
     Route: 048
     Dates: start: 20140107
  3. SOLU MEDROL [Concomitant]
     Dosage: 40 MG, QD
     Route: 042
     Dates: start: 20140219, end: 20140219

REACTIONS (1)
  - Interstitial lung disease [Not Recovered/Not Resolved]
